FAERS Safety Report 9461643 (Version 1)
Quarter: 2013Q3

REPORT INFORMATION
  Report Type: Spontaneous
  Country: BR (occurrence: BR)
  Receive Date: 20130816
  Receipt Date: 20130816
  Transmission Date: 20140515
  Serious: Yes (Hospitalization)
  Sender: FDA-Public Use
  Company Number: BR-AMGEN-BRASP2013057327

PATIENT
  Age: 56 Year
  Sex: Female
  Weight: 56.5 kg

DRUGS (5)
  1. ENBREL [Suspect]
     Indication: RHEUMATOID ARTHRITIS
     Dosage: 50 MG, ONCE WEEKLY
     Route: 058
     Dates: start: 201209
  2. OMEPRAZOL                          /00661201/ [Concomitant]
     Dosage: 20 MG (ONE TABLET), 2X/DAY
     Route: 048
  3. PURAN T4 [Concomitant]
     Dosage: 100 MG (ONE TABLET), 1X/DAY
     Route: 048
  4. ENALAPRIL [Concomitant]
     Dosage: 20 MG (TWO TABLETS OF 10MG), 2X/DAY
     Route: 048
  5. NORIPURUM [Concomitant]
     Dosage: 100 MG (ONE TABLET), 2X/DAY
     Route: 048

REACTIONS (4)
  - Pyrexia [Unknown]
  - Vomiting [Unknown]
  - Epistaxis [Unknown]
  - Influenza [Unknown]
